FAERS Safety Report 7059881-8 (Version None)
Quarter: 2010Q4

REPORT INFORMATION
  Report Type: 
  Country: None (occurrence: None)
  Receive Date: 20101025
  Receipt Date: 20101020
  Transmission Date: 20110411
  Serious: Yes (Other)
  Sender: FDA-Public Use
  Company Number: US-WYE-H18277710

PATIENT
  Sex: Female

DRUGS (2)
  1. PRISTIQ [Suspect]
     Dosage: ^50 MG STARTED ON UNKNOWN DATE AND TITRATED TO 100 MG ON AN UNKNOWN DATE^
     Route: 048
  2. PRISTIQ [Suspect]

REACTIONS (1)
  - SUICIDAL IDEATION [None]
